FAERS Safety Report 15395299 (Version 1)
Quarter: 2018Q3

REPORT INFORMATION
  Report Type: Spontaneous
  Country: US (occurrence: US)
  Receive Date: 20180911
  Receipt Date: 20180911
  Transmission Date: 20181010
  Serious: Yes (Life-Threatening, Hospitalization, Disabling)
  Sender: FDA-Public Use
  Company Number: None

PATIENT
  Age: 87 Year
  Sex: Female
  Weight: 72 kg

DRUGS (4)
  1. ELIQUIS [Suspect]
     Active Substance: APIXABAN
     Indication: ATRIAL FIBRILLATION
  2. NOVOLIN GREEN [Concomitant]
  3. ORANGE PENS INSULIN [Concomitant]
  4. CENTRUM OVER 50 SILVER [Concomitant]

REACTIONS (4)
  - Vomiting [None]
  - Cerebrovascular accident [None]
  - Blood pressure decreased [None]
  - Loss of consciousness [None]

NARRATIVE: CASE EVENT DATE: 20180910
